FAERS Safety Report 5545696-6 (Version None)
Quarter: 2007Q4

REPORT INFORMATION
  Report Type: 
  Country: None (occurrence: None)
  Receive Date: 20071211
  Receipt Date: 20070129
  Transmission Date: 20080405
  Serious: No
  Sender: FDA-Public Use
  Company Number: US-AMGEN-KDL207163

PATIENT
  Sex: Female

DRUGS (7)
  1. ENBREL [Suspect]
     Indication: RHEUMATOID ARTHRITIS
     Route: 058
     Dates: start: 20040301
  2. METHOTREXATE [Suspect]
     Dates: start: 20041214, end: 20050527
  3. SULFASALAZINE [Concomitant]
     Dates: start: 20050309
  4. PREDNISONE [Concomitant]
     Dates: start: 20041214
  5. LORTAB [Concomitant]
  6. FOLIC ACID [Concomitant]
  7. FISH OIL [Concomitant]

REACTIONS (12)
  - ANXIETY [None]
  - DEPRESSION [None]
  - DIABETES MELLITUS [None]
  - FASCIITIS [None]
  - FATIGUE [None]
  - FEAR [None]
  - HEPATIC ENZYME INCREASED [None]
  - HYPERTENSION [None]
  - JOINT INJURY [None]
  - MUSCULOSKELETAL STIFFNESS [None]
  - PAIN [None]
  - RHEUMATOID ARTHRITIS [None]
